FAERS Safety Report 9988750 (Version 1)
Quarter: 2013Q4

REPORT INFORMATION
  Report Type: Spontaneous
  Country: MX (occurrence: None)
  Receive Date: 20131008
  Receipt Date: 20131008
  Transmission Date: 20140711
  Serious: Yes (Hospitalization)
  Sender: FDA-Public Use
  Company Number: ENTC2011-0435

PATIENT
  Age: 85 Year
  Sex: Male

DRUGS (2)
  1. STALEVO [Suspect]
     Indication: PARKINSON^S DISEASE
     Dosage: 3 TABLET  PER DAY
     Route: 048
     Dates: start: 201107
  2. ALMETEC [Concomitant]

REACTIONS (4)
  - Diarrhoea [None]
  - Diverticulum intestinal [None]
  - Insomnia [None]
  - Nervousness [None]
